FAERS Safety Report 15047999 (Version 1)
Quarter: 2018Q2

REPORT INFORMATION
  Report Type: Spontaneous
  Country: DE (occurrence: DE)
  Receive Date: 20180622
  Receipt Date: 20180622
  Transmission Date: 20180711
  Serious: Yes (Hospitalization)
  Sender: FDA-Public Use
  Company Number: DE-TEVA-2018-DE-911219

PATIENT
  Age: 73 Year
  Sex: Female
  Weight: 75 kg

DRUGS (10)
  1. PREDNISOLONE. [Suspect]
     Active Substance: PREDNISOLONE
     Dosage: 30 MG, 1-0-0-0
     Route: 048
  2. VIGANTOLETTEN 1000I.E. [Concomitant]
     Dosage: 1000 IE, 1-0-0-0
     Route: 048
  3. COTRIM FORTE [Concomitant]
     Active Substance: SULFAMETHOXAZOLE\TRIMETHOPRIM
     Dosage: 800|160 MG, SCHEMA
     Route: 048
  4. BICANORM [Concomitant]
     Active Substance: SODIUM BICARBONATE
     Dosage: 1 G, 1-0-1-0
     Route: 048
  5. AMLODIPINE [Concomitant]
     Active Substance: AMLODIPINE BESYLATE
     Dosage: 5 MG, 1-0-1-0
     Route: 048
  6. TORASEMID [Concomitant]
     Active Substance: TORSEMIDE
     Dosage: 10 MG, 2-2-0-0
     Route: 048
  7. PANTOPRAZOL [Concomitant]
     Active Substance: PANTOPRAZOLE SODIUM
     Dosage: 40 MG, 1-0-0-0
     Route: 048
  8. CYCLOPHOSPHAMIDE. [Suspect]
     Active Substance: CYCLOPHOSPHAMIDE
     Dosage: 7.5 MG/KG, SCHEMA, INJEKTIONS-/INFUSIONSL?SUNG
     Route: 042
  9. L-THYROXIN 150 [Concomitant]
     Dosage: 150 ?G, 1-0-0-0
     Route: 048
  10. SITAGLIPTIN [Concomitant]
     Active Substance: SITAGLIPTIN
     Dosage: 25 MG, 1-0-0-0
     Route: 048

REACTIONS (11)
  - Chills [Unknown]
  - Dysgeusia [Unknown]
  - Pollakiuria [Unknown]
  - Fatigue [Unknown]
  - Spinal pain [Unknown]
  - Oedema peripheral [Unknown]
  - Dyspnoea [Unknown]
  - Diarrhoea [Unknown]
  - General physical health deterioration [Unknown]
  - Haematoma [Unknown]
  - Urinary incontinence [Unknown]
